FAERS Safety Report 24389154 (Version 1)
Quarter: 2024Q4

REPORT INFORMATION
  Report Type: Report from Study
  Country: CA (occurrence: CA)
  Receive Date: 20241002
  Receipt Date: 20241002
  Transmission Date: 20250115
  Serious: Yes (Other)
  Sender: ABBVIE
  Company Number: CA-ABBVIE-5944312

PATIENT
  Sex: Female

DRUGS (1)
  1. RINVOQ [Suspect]
     Active Substance: UPADACITINIB
     Indication: Rheumatoid arthritis
     Route: 048
     Dates: start: 20240915, end: 20240921

REACTIONS (5)
  - Cardiac disorder [Unknown]
  - Abdominal pain upper [Unknown]
  - Candida infection [Unknown]
  - Nausea [Unknown]
  - Headache [Unknown]

NARRATIVE: CASE EVENT DATE: 20240901
